FAERS Safety Report 22628878 (Version 1)
Quarter: 2023Q2

REPORT INFORMATION
  Report Type: Report from Study
  Country: CN (occurrence: CN)
  Receive Date: 20230622
  Receipt Date: 20230622
  Transmission Date: 20230722
  Serious: Yes (Other)
  Sender: FDA-Public Use
  Company Number: CN-BAYER-2023A083080

PATIENT

DRUGS (1)
  1. EYLEA [Suspect]
     Active Substance: AFLIBERCEPT
     Indication: Retinal vein occlusion
     Dosage: 2MG/0.05ML, THE INJECTION WAS GIVEN ONCE A MONTH, CONTINUOUS INJECTION FOR 3 MONTHS
     Route: 031

REACTIONS (1)
  - Ocular hypertension [Unknown]
